FAERS Safety Report 4308966-5 (Version None)
Quarter: 2004Q1

REPORT INFORMATION
  Report Type: 
  Country: None (occurrence: None)
  Receive Date: 20040227
  Receipt Date: 20040223
  Transmission Date: 20041129
  Serious: Yes (Death)
  Sender: FDA-Public Use
  Company Number: GB-JNJFOC-20031204251

PATIENT
  Age: 74 Year
  Sex: Female

DRUGS (5)
  1. REMICADE [Suspect]
     Indication: RHEUMATOID ARTHRITIS
     Dosage: 235 MG, INTRAVENOUS
     Route: 042
     Dates: start: 20020109
  2. METHOTREXATE [Concomitant]
  3. CELECOXIB [Concomitant]
  4. CARDURA [Concomitant]
  5. FOLIC ACID [Concomitant]

REACTIONS (16)
  - ADENOCARCINOMA PANCREAS [None]
  - BLOOD CULTURE POSITIVE [None]
  - DEEP VEIN THROMBOSIS [None]
  - GENERAL PHYSICAL HEALTH DETERIORATION [None]
  - GRAM STAIN NEGATIVE [None]
  - LIVER FUNCTION TEST ABNORMAL [None]
  - LYMPHADENOPATHY [None]
  - METASTASES TO LUNG [None]
  - OEDEMA PERIPHERAL [None]
  - PANCYTOPENIA [None]
  - PATHOGEN RESISTANCE [None]
  - PNEUMONIA STAPHYLOCOCCAL [None]
  - POSITRON EMISSION TOMOGRAM ABNORMAL [None]
  - RENAL IMPAIRMENT [None]
  - SEPSIS [None]
  - SPUTUM CULTURE POSITIVE [None]
